FAERS Safety Report 7361905-5 (Version None)
Quarter: 2011Q1

REPORT INFORMATION
  Report Type: 
  Country: None (occurrence: None)
  Receive Date: 20110318
  Receipt Date: 20110316
  Transmission Date: 20110831
  Serious: Yes (Other)
  Sender: FDA-Public Use
  Company Number: FR-BRISTOL-MYERS SQUIBB COMPANY-15561558

PATIENT
  Age: 29 Year
  Sex: Male
  Weight: 47 kg

DRUGS (4)
  1. KETODERM [Concomitant]
     Dates: start: 20110207
  2. REYATAZ [Suspect]
     Indication: HIV INFECTION
     Dosage: 2 DF:2 CAPS
     Dates: start: 20091110
  3. DOMPERIDONE [Concomitant]
     Dates: start: 20110207
  4. KIVEXA [Suspect]
     Indication: HIV INFECTION

REACTIONS (1)
  - TENDON RUPTURE [None]
